FAERS Safety Report 18238367 (Version 1)
Quarter: 2020Q3

REPORT INFORMATION
  Report Type: Spontaneous
  Country: US (occurrence: US)
  Receive Date: 20200907
  Receipt Date: 20200907
  Transmission Date: 20201103
  Serious: No
  Sender: FDA-Public Use
  Company Number: US-BAUSCH-BL-2020-024944

PATIENT
  Sex: Female

DRUGS (2)
  1. NEOMYCIN/POLYMYXIN B SULFATES BACITRACIN ZINC/HYDROCORTISONE OPHT OINT [Suspect]
     Active Substance: BACITRACIN ZINC\HYDROCORTISONE\NEOMYCIN SULFATE\POLYMYXIN B SULFATE
     Indication: EYE PRURITUS
     Route: 047
  2. NEOMYCIN/POLYMYXIN B SULFATES BACITRACIN ZINC/HYDROCORTISONE OPHT OINT [Suspect]
     Active Substance: BACITRACIN ZINC\HYDROCORTISONE\NEOMYCIN SULFATE\POLYMYXIN B SULFATE
     Indication: HORDEOLUM
     Dosage: ALL DAY
     Route: 047
     Dates: start: 20200825

REACTIONS (4)
  - Erythema [Unknown]
  - Periorbital swelling [Unknown]
  - Swelling of eyelid [Unknown]
  - Erythema of eyelid [Unknown]

NARRATIVE: CASE EVENT DATE: 20200826
